FAERS Safety Report 25690238 (Version 1)
Quarter: 2025Q3

REPORT INFORMATION
  Report Type: Spontaneous
  Country: US (occurrence: None)
  Receive Date: 20250818
  Receipt Date: 20250818
  Transmission Date: 20251020
  Serious: No
  Sender: INCYTE
  Company Number: US-INCYTE CORPORATION-2025IN008716

PATIENT

DRUGS (1)
  1. JAKAFI [Suspect]
     Active Substance: RUXOLITINIB
     Indication: Polycythaemia vera
     Dosage: 5 MILLIGRAM, BID, 1 TABLET BY MOUTH IN THE MORNING AND 2 TABLETS BY MONTH IN THE EVENING

REACTIONS (2)
  - Swelling [Unknown]
  - Decreased activity [Unknown]
